FAERS Safety Report 7590855-4 (Version None)
Quarter: 2011Q3

REPORT INFORMATION
  Report Type: 
  Country: None (occurrence: None)
  Receive Date: 20110705
  Receipt Date: 20110622
  Transmission Date: 20111222
  Serious: Yes (Hospitalization)
  Sender: FDA-Public Use
  Company Number: PHHY2011TW55896

PATIENT
  Age: 55 Year
  Sex: Female

DRUGS (1)
  1. ZOLEDRONIC ACID [Suspect]
     Indication: OSTEOPOROSIS POSTMENOPAUSAL
     Dosage: 5 MG/100 C.C, ONCE PER YEAR
     Route: 042
     Dates: start: 20110618

REACTIONS (7)
  - OEDEMA PERIPHERAL [None]
  - VOMITING [None]
  - DIZZINESS [None]
  - PYREXIA [None]
  - DYSPNOEA [None]
  - HEADACHE [None]
  - FEELING COLD [None]
